FAERS Safety Report 8307713-X (Version None)
Quarter: 2012Q2

REPORT INFORMATION
  Report Type: 
  Country: None (occurrence: None)
  Receive Date: 20120424
  Receipt Date: 20120416
  Transmission Date: 20120825
  Serious: Yes (Hospitalization, Other)
  Sender: FDA-Public Use
  Company Number: PHHY2011AR85875

PATIENT
  Sex: Female

DRUGS (3)
  1. ONBREZ [Suspect]
     Indication: CHRONIC OBSTRUCTIVE PULMONARY DISEASE
     Dosage: 150 UG, QD
     Dates: start: 20110406
  2. ONBREZ [Suspect]
     Dosage: 1 DF, QD
  3. ONBREZ [Suspect]
     Dosage: 2 DF, QD
     Dates: start: 20110601, end: 20110902

REACTIONS (10)
  - TACHYCARDIA [None]
  - BODY TEMPERATURE INCREASED [None]
  - FATIGUE [None]
  - OROPHARYNGEAL PAIN [None]
  - NASOPHARYNGITIS [None]
  - ASTHMA [None]
  - RESPIRATORY TRACT INFECTION [None]
  - INCREASED UPPER AIRWAY SECRETION [None]
  - DYSPNOEA [None]
  - HEADACHE [None]
